FAERS Safety Report 25467548 (Version 1)
Quarter: 2025Q2

REPORT INFORMATION
  Report Type: Spontaneous
  Country: US (occurrence: None)
  Receive Date: 20250621
  Receipt Date: 20250621
  Transmission Date: 20250716
  Serious: Yes (Other)
  Sender: FDA-CTU
  Company Number: None

PATIENT
  Age: 39 Year
  Sex: Female
  Weight: 78 kg

DRUGS (1)
  1. SALICYLIC ACID [Suspect]
     Active Substance: SALICYLIC ACID
     Dosage: TWICE A DAY TOPICAL
     Route: 061
     Dates: start: 20250619, end: 20250621

REACTIONS (2)
  - Thermal burn [None]
  - Urticaria [None]

NARRATIVE: CASE EVENT DATE: 20250619
